FAERS Safety Report 7734784-1 (Version None)
Quarter: 2011Q3

REPORT INFORMATION
  Report Type: 
  Country: None (occurrence: None)
  Receive Date: 20110907
  Receipt Date: 20110902
  Transmission Date: 20111222
  Serious: Yes (Hospitalization, Other)
  Sender: FDA-Public Use
  Company Number: BR-BRISTOL-MYERS SQUIBB COMPANY-16033136

PATIENT
  Sex: Male

DRUGS (6)
  1. GLYBURIDE [Concomitant]
  2. VIVACOR [Concomitant]
  3. ATENOLOL [Concomitant]
  4. METFORMIN HCL [Concomitant]
  5. ASPIRIN [Concomitant]
     Dosage: 1 TABLET AFTER LUNCH
  6. IRBESARTAN [Suspect]
     Indication: HYPERTENSION
     Dosage: STARTED 5 YRS BACK AND STOPPED 2 YRS BACK

REACTIONS (4)
  - DIABETES MELLITUS [None]
  - INFARCTION [None]
  - CORONARY ARTERY OCCLUSION [None]
  - DYSPNOEA [None]
